FAERS Safety Report 5989908-3 (Version None)
Quarter: 2008Q4

REPORT INFORMATION
  Report Type: 
  Country: None (occurrence: None)
  Receive Date: 20081210
  Receipt Date: 20081126
  Transmission Date: 20090506
  Serious: Yes (Hospitalization)
  Sender: FDA-Public Use
  Company Number: DSJ-2008-08621

PATIENT
  Age: 64 Year
  Sex: Female

DRUGS (4)
  1. OLMESARTAN MEDOXOMIL [Suspect]
     Indication: HYPERTENSION
     Dosage: 20 MG (20 MG, 1 IN 1 D), PER ORAL
     Route: 048
     Dates: start: 20080630, end: 20080707
  2. PL GRAN. (CAFFEINE, SALICYLAMIDE, PARACETAMOL, PROMETHAZINE METHYLENE [Concomitant]
  3. FLOMOX (CAFCAPENE PIVOXIL HYDROCHLORIDE) (TABLET) (CEFCAPENE PIVOXIL H [Concomitant]
  4. LOXONIN (LOXOPROFEN SODIUM) (TABLET) (LOXOPROFEN SODIUM) [Concomitant]

REACTIONS (3)
  - CHOLELITHIASIS [None]
  - CHOLESTASIS [None]
  - HEPATITIS ACUTE [None]
